FAERS Safety Report 24151700 (Version 1)
Quarter: 2024Q3

REPORT INFORMATION
  Report Type: Spontaneous
  Country: US (occurrence: US)
  Receive Date: 20240730
  Receipt Date: 20240730
  Transmission Date: 20241016
  Serious: No
  Sender: PERRIGO
  Company Number: US-PERRIGO-24US005437

PATIENT

DRUGS (2)
  1. LORATADINE [Suspect]
     Active Substance: LORATADINE
     Indication: Product used for unknown indication
     Dosage: 10 MG, SINGLE
     Route: 048
     Dates: start: 20240604, end: 20240604
  2. LORATADINE [Suspect]
     Active Substance: LORATADINE
     Indication: Extra dose administered
     Dosage: 10 MG, SINGLE
     Route: 048
     Dates: start: 20240604, end: 20240604

REACTIONS (1)
  - Extra dose administered [Unknown]

NARRATIVE: CASE EVENT DATE: 20240604
